FAERS Safety Report 8223187-1 (Version None)
Quarter: 2012Q1

REPORT INFORMATION
  Report Type: 
  Country: None (occurrence: None)
  Receive Date: 20120321
  Receipt Date: 20120312
  Transmission Date: 20120608
  Serious: Yes (Hospitalization)
  Sender: FDA-Public Use
  Company Number: US-ROCHE-1049911

PATIENT
  Sex: Female
  Weight: 59.02 kg

DRUGS (5)
  1. LOSARTAN POTASSIUM [Concomitant]
  2. PULMICORT [Concomitant]
  3. PROTONIX [Concomitant]
  4. OMALIZUMAB [Suspect]
     Indication: ASTHMA
     Dosage: 2 INJECTIONS
     Route: 058
     Dates: start: 20120227
  5. ALBUTEROL [Concomitant]

REACTIONS (1)
  - DYSPNOEA [None]
